FAERS Safety Report 5223853-6 (Version None)
Quarter: 2007Q1

REPORT INFORMATION
  Report Type: 
  Country: None (occurrence: None)
  Receive Date: 20070130
  Receipt Date: 20070116
  Transmission Date: 20070707
  Serious: Yes (Hospitalization, Other)
  Sender: FDA-Public Use
  Company Number: PHEH2006US11985

PATIENT
  Age: 55 Year
  Sex: Male

DRUGS (8)
  1. CYTADREN [Suspect]
     Indication: CUSHING'S SYNDROME
     Dosage: 250 MG, 6QD
     Route: 048
     Dates: end: 20060818
  2. CYTADREN [Suspect]
     Dosage: 250 MG, TID
     Dates: start: 20060911
  3. CYTADREN [Suspect]
     Dosage: 250MG 2 TABS, TID
     Route: 048
     Dates: start: 20060908
  4. METOPIRONE [Concomitant]
     Indication: CUSHING'S SYNDROME
     Dosage: 250MG 2 TABS, TID
     Dates: start: 20060822
  5. FAMOTIDINE [Concomitant]
     Indication: GASTRITIS
     Dosage: 20 MG, BID
     Dates: start: 20060822, end: 20061201
  6. REGLAN [Concomitant]
     Dosage: 10 MG, TID
     Dates: start: 20060824, end: 20061003
  7. CORTEF                                  /CAN/ [Concomitant]
     Indication: STEROID THERAPY
     Dosage: 20 MG, QAM
     Dates: start: 20060822
  8. CORTEF                                  /CAN/ [Concomitant]
     Dosage: 10 MG, QPM
     Dates: start: 20060822

REACTIONS (6)
  - BILIARY TRACT DISORDER [None]
  - BLOOD CORTISOL INCREASED [None]
  - HEPATECTOMY [None]
  - PROCEDURAL SITE REACTION [None]
  - PYREXIA [None]
  - SOMNOLENCE [None]
